FAERS Safety Report 5304054-X (Version None)
Quarter: 2007Q1

REPORT INFORMATION
  Report Type: 
  Country: None (occurrence: None)
  Receive Date: 20070201
  Receipt Date: 20061111
  Transmission Date: 20070707
  Serious: No
  Sender: FDA-Public Use
  Company Number: 2006PV025095

PATIENT
  Age: 69 Year
  Sex: Female
  Weight: 99.3377 kg

DRUGS (5)
  1. BYETTA [Suspect]
     Indication: DIABETES MELLITUS NON-INSULIN-DEPENDENT
     Dosage: 5 MCG;BID;SC
     Route: 058
     Dates: start: 20061108
  2. LASIX [Suspect]
     Indication: SWELLING
     Dates: start: 20061108, end: 20061111
  3. GLUCOPHAGE [Concomitant]
  4. NEXIUM [Concomitant]
  5. PREVACID [Concomitant]

REACTIONS (3)
  - BLOOD GLUCOSE INCREASED [None]
  - INJECTION SITE IRRITATION [None]
  - NAUSEA [None]
